FAERS Safety Report 10805495 (Version 1)
Quarter: 2015Q1

REPORT INFORMATION
  Report Type: Report from Study
  Country: US (occurrence: US)
  Receive Date: 20150217
  Receipt Date: 20150217
  Transmission Date: 20150721
  Serious: No
  Sender: FDA-Public Use
  Company Number: US-ABBVIE-14K-163-1246342-00

PATIENT
  Age: 21 Year
  Sex: Female

DRUGS (4)
  1. CHLORD CLIDI [Concomitant]
     Indication: PRODUCT USED FOR UNKNOWN INDICATION
  2. VITAMIN B12 [Concomitant]
     Active Substance: CYANOCOBALAMIN
     Indication: PRODUCT USED FOR UNKNOWN INDICATION
  3. PENTASA [Concomitant]
     Active Substance: MESALAMINE
     Indication: PRODUCT USED FOR UNKNOWN INDICATION
  4. HUMIRA [Suspect]
     Active Substance: ADALIMUMAB
     Indication: CROHN^S DISEASE
     Dates: start: 201312

REACTIONS (7)
  - Back pain [Unknown]
  - Fatigue [Unknown]
  - Ocular icterus [Unknown]
  - Musculoskeletal stiffness [Not Recovered/Not Resolved]
  - Stress [Unknown]
  - Skin discolouration [Unknown]
  - Abdominal pain [Unknown]

NARRATIVE: CASE EVENT DATE: 201404
